FAERS Safety Report 6203134-4 (Version None)
Quarter: 2009Q2

REPORT INFORMATION
  Report Type: 
  Country: None (occurrence: None)
  Receive Date: 20090521
  Receipt Date: 20090512
  Transmission Date: 20091009
  Serious: Yes (Death)
  Sender: FDA-Public Use
  Company Number: GXKR2009AT05753

PATIENT
  Age: 51 Year
  Sex: Male

DRUGS (3)
  1. DEXAMETHASONE [Suspect]
     Indication: HODGKIN'S DISEASE
  2. CYTARABINE [Suspect]
     Indication: HODGKIN'S DISEASE
  3. CISPLATIN [Suspect]
     Indication: HODGKIN'S DISEASE

REACTIONS (1)
  - BACTERIAL INFECTION [None]
